FAERS Safety Report 10231604 (Version 2)
Quarter: 2014Q2

REPORT INFORMATION
  Report Type: Spontaneous
  Country: IT (occurrence: IT)
  Receive Date: 20140611
  Receipt Date: 20140616
  Transmission Date: 20141212
  Serious: Yes (Death, Life-Threatening, Hospitalization, Other)
  Sender: FDA-Public Use
  Company Number: IT-TEVA-486451ISR

PATIENT
  Age: 69 Year
  Sex: Male
  Weight: 70 kg

DRUGS (3)
  1. RIBAVIRIN [Suspect]
     Indication: ANTIVIRAL TREATMENT
     Dosage: 1 GRAM DAILY; (3 TABLETS+2 TABLETS)
     Route: 048
     Dates: start: 20140325, end: 20140503
  2. INCIVO - JANSSEN-CILAG INTERNATIONAL N.V. [Suspect]
     Indication: ANTIVIRAL TREATMENT
     Dosage: 2250 MILLIGRAM DAILY; (3 TABLETS+3TABLETS)
     Route: 048
     Dates: start: 20140325, end: 20140503
  3. PEGINTERFERON LAMBDA-1A [Suspect]
     Indication: ANTIVIRAL TREATMENT
     Dosage: 1 DF WEEKLY
     Route: 058
     Dates: start: 20140325, end: 20140503

REACTIONS (19)
  - Sepsis [Fatal]
  - Septic shock [Fatal]
  - Ascites [Unknown]
  - Cholestasis [Unknown]
  - Encephalopathy [Unknown]
  - Hepatic failure [Unknown]
  - Pyrexia [Unknown]
  - Rash [Unknown]
  - Syncope [Unknown]
  - Loss of consciousness [Unknown]
  - Rash erythematous [Unknown]
  - Confusional state [Unknown]
  - Apraxia [Unknown]
  - Sopor [Unknown]
  - Jaundice [Unknown]
  - Hyperbilirubinaemia [Unknown]
  - Acute pulmonary oedema [Unknown]
  - Decreased appetite [Unknown]
  - Malaise [Unknown]
